FAERS Safety Report 7378023-2 (Version None)
Quarter: 2011Q1

REPORT INFORMATION
  Report Type: 
  Country: None (occurrence: None)
  Receive Date: 20110307
  Receipt Date: 20110303
  Transmission Date: 20110831
  Serious: Yes (Hospitalization, Other)
  Sender: FDA-Public Use
  Company Number: JPI-P-014108

PATIENT
  Age: 39 Year
  Sex: Female

DRUGS (5)
  1. VITAMIN D [Suspect]
     Indication: PRODUCT USED FOR UNKNOWN INDICATION
  2. UNSPECIFIED MEDICATIONS [Suspect]
     Indication: PRODUCT USED FOR UNKNOWN INDICATION
  3. XYREM [Suspect]
     Indication: SLEEP DISORDER
     Dosage: SEE IMAGE
     Route: 048
     Dates: start: 20081208, end: 20110228
  4. XYREM [Suspect]
     Indication: SLEEP DISORDER
     Dosage: SEE IMAGE
     Route: 048
     Dates: end: 20110228
  5. XYREM [Suspect]
     Indication: SLEEP DISORDER
     Dosage: SEE IMAGE
     Route: 048
     Dates: start: 20080711, end: 20081207

REACTIONS (10)
  - BLOOD PRESSURE INCREASED [None]
  - HYPERHIDROSIS [None]
  - DRUG ABUSE [None]
  - CONTUSION [None]
  - INSOMNIA [None]
  - TUNNEL VISION [None]
  - DIZZINESS [None]
  - ANXIETY [None]
  - HYPERVITAMINOSIS D [None]
  - PAIN [None]
